FAERS Safety Report 7412968-X (Version None)
Quarter: 2011Q2

REPORT INFORMATION
  Report Type: 
  Country: None (occurrence: None)
  Receive Date: 20110413
  Receipt Date: 20110401
  Transmission Date: 20111010
  Serious: Yes (Hospitalization)
  Sender: FDA-Public Use
  Company Number: PHHY2011IT26950

PATIENT
  Sex: Male

DRUGS (6)
  1. FUROSEMIDE [Suspect]
     Dosage: 100 MG, UNK
     Route: 048
     Dates: start: 20101001, end: 20101127
  2. CONGESCOR [Concomitant]
     Dosage: 1.25 MG, UNK
  3. ALDACTONE [Concomitant]
     Dosage: 25 MG, UNK
  4. TRIATEC [Concomitant]
     Dosage: 5 MG, UNK
  5. NORVASC [Concomitant]
     Dosage: 10 MG, UNK
  6. ASPIRIN [Concomitant]
     Dosage: 100 MG, UNK

REACTIONS (3)
  - OEDEMA PERIPHERAL [None]
  - CARDIAC FAILURE [None]
  - DYSPNOEA [None]
